FAERS Safety Report 6332320-8 (Version None)
Quarter: 2009Q3

REPORT INFORMATION
  Report Type: 
  Country: None (occurrence: None)
  Receive Date: 20090828
  Receipt Date: 20090819
  Transmission Date: 20100115
  Serious: Yes (Hospitalization, Other)
  Sender: FDA-Public Use
  Company Number: PHHY2009MX06450

PATIENT
  Sex: Female

DRUGS (2)
  1. STALEVO 100 [Suspect]
     Indication: PARKINSON'S DISEASE
     Dosage: 1 TABLET (200/100/25 MG) PER DAY
     Route: 048
     Dates: start: 20060101
  2. STALEVO 100 [Suspect]
     Dosage: 3 TABLETS PER DAY
     Route: 048
     Dates: start: 20090201

REACTIONS (5)
  - GASTROINTESTINAL NECROSIS [None]
  - ILEOSTOMY [None]
  - ILEOSTOMY CLOSURE [None]
  - INTESTINAL OBSTRUCTION [None]
  - SURGERY [None]
